FAERS Safety Report 7329795-4 (Version None)
Quarter: 2011Q1

REPORT INFORMATION
  Report Type: 
  Country: None (occurrence: None)
  Receive Date: 20110303
  Receipt Date: 20110225
  Transmission Date: 20110831
  Serious: Yes (Death)
  Sender: FDA-Public Use
  Company Number: PT-GILEAD-2009-0025285

PATIENT
  Age: 67 Year
  Sex: Male

DRUGS (2)
  1. VIREAD [Suspect]
     Indication: HEPATITIS B
  2. NEXAVAR [Concomitant]
     Indication: HEPATIC NEOPLASM MALIGNANT

REACTIONS (1)
  - HEPATIC FAILURE [None]
